FAERS Safety Report 8247738-6 (Version None)
Quarter: 2012Q1

REPORT INFORMATION
  Report Type: 
  Country: None (occurrence: None)
  Receive Date: 20120330
  Receipt Date: 20120322
  Transmission Date: 20120608
  Serious: Yes (Other)
  Sender: FDA-Public Use
  Company Number: US-VIIV HEALTHCARE LIMITED-A0971546A

PATIENT
  Age: 19 Year
  Sex: Female

DRUGS (5)
  1. CITALOPRAM HYDROBROMIDE [Concomitant]
  2. COMBIVIR [Suspect]
     Indication: ANTIRETROVIRAL THERAPY
     Dosage: 200MGD PER DAY
     Route: 048
     Dates: start: 20110811, end: 20111117
  3. PREZISTA [Suspect]
     Indication: ANTIRETROVIRAL THERAPY
     Dosage: 800MGD PER DAY
     Route: 048
     Dates: start: 20110916
  4. NORVIR [Suspect]
     Indication: ANTIRETROVIRAL THERAPY
     Dosage: 100MGD PER DAY
     Route: 048
     Dates: start: 20110916
  5. VITAMIN AND MINERAL PRENATAL SUPPLEMENT W/ FOLIC ACID CAP [Concomitant]

REACTIONS (3)
  - PREMATURE BABY [None]
  - PRE-ECLAMPSIA [None]
  - MATERNAL EXPOSURE DURING PREGNANCY [None]
